FAERS Safety Report 9797753 (Version 1)
Quarter: 2014Q1

REPORT INFORMATION
  Report Type: Spontaneous
  Country: US (occurrence: US)
  Receive Date: 20140106
  Receipt Date: 20140106
  Transmission Date: 20141002
  Serious: Yes (Other)
  Sender: FDA-Public Use
  Company Number: US-JNJFOC-20131216950

PATIENT
  Age: 81 Year
  Sex: Male
  Weight: 75.3 kg

DRUGS (10)
  1. SANDOZ FENTANYL TRANSDERMAL SYSTEM [Suspect]
     Indication: SPINAL FRACTURE
     Route: 062
     Dates: start: 20131116
  2. SANDOZ FENTANYL TRANSDERMAL SYSTEM [Suspect]
     Indication: SPINAL FRACTURE
     Dosage: NDC 0781-7240-55
     Route: 062
     Dates: start: 20130916
  3. NEXIUM [Concomitant]
     Indication: ANTACID THERAPY
     Route: 048
     Dates: start: 2003
  4. LIPITOR [Concomitant]
     Indication: BLOOD CHOLESTEROL INCREASED
     Route: 048
     Dates: start: 2003
  5. LISINOPRIL [Concomitant]
     Indication: PRODUCT USED FOR UNKNOWN INDICATION
     Route: 048
     Dates: start: 2003
  6. COUMADIN [Concomitant]
     Indication: CARDIAC DISORDER
     Route: 048
     Dates: start: 2003
  7. AMIODARONE [Concomitant]
     Indication: ATRIAL FIBRILLATION
     Route: 048
  8. FOLTX [Concomitant]
     Indication: VITAMIN SUPPLEMENTATION
     Route: 048
     Dates: start: 2003
  9. NORVASC [Concomitant]
     Indication: BLOOD PRESSURE
     Route: 048
     Dates: start: 2003
  10. PROSCAR [Concomitant]
     Indication: PROSTATIC DISORDER
     Route: 048
     Dates: start: 2003

REACTIONS (7)
  - Drug dependence [Not Recovered/Not Resolved]
  - Hypoaesthesia [Not Recovered/Not Resolved]
  - Drug administration error [Recovered/Resolved]
  - Incorrect drug administration duration [Recovered/Resolved]
  - Feeling abnormal [Not Recovered/Not Resolved]
  - Muscle twitching [Not Recovered/Not Resolved]
  - Inappropriate schedule of drug administration [Not Recovered/Not Resolved]
